FAERS Safety Report 7927355-5 (Version None)
Quarter: 2011Q4

REPORT INFORMATION
  Report Type: 
  Country: None (occurrence: None)
  Receive Date: 20111118
  Receipt Date: 20111111
  Transmission Date: 20120403
  Serious: Yes (Other)
  Sender: FDA-Public Use
  Company Number: PHHY2011DK099924

PATIENT
  Age: 38 Year
  Sex: Female

DRUGS (2)
  1. GLEEVEC [Suspect]
     Indication: CHRONIC MYELOID LEUKAEMIA
     Dosage: 400 MG, ONCE DAILY
     Dates: start: 20101214, end: 20110616
  2. GLEEVEC [Suspect]
     Dosage: 400 MG, ONCE DAILY
     Dates: start: 20110728

REACTIONS (3)
  - THYROID CYST [None]
  - HEPATIC ENZYME ABNORMAL [None]
  - NEUTROPENIA [None]
